FAERS Safety Report 4591196-X (Version None)
Quarter: 2005Q1

REPORT INFORMATION
  Report Type: 
  Country: None (occurrence: None)
  Receive Date: 20050222
  Receipt Date: 20041228
  Transmission Date: 20050727
  Serious: Yes (Other)
  Sender: FDA-Public Use
  Company Number: 2004113205

PATIENT
  Age: 85 Year
  Sex: Female
  Weight: 70 kg

DRUGS (4)
  1. CELEBREX [Suspect]
     Indication: ARTHRALGIA
     Dosage: (200 MG 1 IN 1 D)
     Dates: end: 20041001
  2. SPIRONOLACTONE [Concomitant]
  3. TRIMETAZIDINE HYDROCHLORIDE (TRIMETAZIDINE HYDROCHLORIDE) [Concomitant]
  4. PRAVASTATIN SODIUM [Concomitant]

REACTIONS (3)
  - DIVERTICULUM [None]
  - MELAENA [None]
  - RECTAL HAEMORRHAGE [None]
